FAERS Safety Report 10435087 (Version 1)
Quarter: 2014Q3

REPORT INFORMATION
  Report Type: Spontaneous
  Country: US (occurrence: None)
  Receive Date: 20140815
  Receipt Date: 20140815
  Transmission Date: 20150326
  Serious: No
  Sender: FDA-Public Use
  Company Number: 2014TUS003220

PATIENT
  Age: 50 Year

DRUGS (4)
  1. BRINTELLIX [Suspect]
     Active Substance: VORTIOXETINE HYDROBROMIDE
     Indication: MAJOR DEPRESSION
     Route: 048
     Dates: start: 20140409, end: 20140423
  2. XANAX [Concomitant]
     Active Substance: ALPRAZOLAM
  3. NUVIGIL [Concomitant]
     Active Substance: ARMODAFINIL
  4. APLENZIN (BUPROPION HYDROBROMIDE) [Concomitant]

REACTIONS (2)
  - Tic [None]
  - Muscle twitching [None]

NARRATIVE: CASE EVENT DATE: 20140422
